FAERS Safety Report 19164172 (Version 1)
Quarter: 2021Q2

REPORT INFORMATION
  Report Type: Spontaneous
  Country: US (occurrence: US)
  Receive Date: 20210419
  Receipt Date: 20210419
  Transmission Date: 20210717
  Serious: Yes (Life-Threatening, Other)
  Sender: FDA-Public Use
  Company Number: None

PATIENT
  Age: 78 Year
  Sex: Female
  Weight: 86.18 kg

DRUGS (11)
  1. SYNTHROID [Concomitant]
     Active Substance: LEVOTHYROXINE SODIUM
  2. VIT B?12 INJECTIONS [Concomitant]
  3. ESCITALOPRAM 10MG (GENERIC LEXAPRO) [Suspect]
     Active Substance: ESCITALOPRAM OXALATE
     Indication: DEPRESSION
     Dates: start: 20201208, end: 20201208
  4. AMLODIPINE BESYLATE. [Concomitant]
     Active Substance: AMLODIPINE BESYLATE
  5. SYSTANE EYE DROPS PRN [Concomitant]
  6. VIT D + CALCIUM [Concomitant]
  7. ALEVE [Concomitant]
     Active Substance: NAPROXEN SODIUM
  8. BACK BRACE [Concomitant]
  9. ASPIRIN. [Concomitant]
     Active Substance: ASPIRIN
  10. NORCO 10MG [Concomitant]
  11. ICY HOT LIDOCAINE SPRAY [Concomitant]

REACTIONS (6)
  - Nightmare [None]
  - Chest pain [None]
  - Dizziness [None]
  - Headache [None]
  - Amnesia [None]
  - Loss of consciousness [None]
